FAERS Safety Report 6173530-2 (Version None)
Quarter: 2009Q2

REPORT INFORMATION
  Report Type: 
  Country: None (occurrence: None)
  Receive Date: 20090430
  Receipt Date: 20090421
  Transmission Date: 20091009
  Serious: Yes (Hospitalization, Disabling)
  Sender: FDA-Public Use
  Company Number: B0557971A

PATIENT
  Sex: Female

DRUGS (7)
  1. ARIXTRA [Suspect]
     Indication: THROMBOSIS PROPHYLAXIS
     Dosage: 1.5MG PER DAY
     Route: 058
     Dates: start: 20090130, end: 20090203
  2. BUFFERIN [Concomitant]
     Indication: PROPHYLAXIS
     Dosage: 81MG PER DAY
     Route: 048
     Dates: end: 20090118
  3. UNKNOWN DRUG [Concomitant]
     Indication: HYPERTENSION
     Dosage: 40MG PER DAY
     Route: 048
  4. MELBIN [Concomitant]
     Indication: DIABETES MELLITUS
     Dosage: 250MG PER DAY
     Route: 048
  5. LIPITOR [Concomitant]
     Dosage: 10MG PER DAY
     Route: 048
  6. EUGLUCON [Concomitant]
     Indication: DIABETES MELLITUS
     Dosage: 5MG PER DAY
     Route: 048
  7. FUROSEMIDE [Concomitant]
     Indication: HYPERTENSION
     Dosage: 40MG PER DAY
     Route: 048

REACTIONS (3)
  - CEREBRAL INFARCTION [None]
  - HEMIPLEGIA [None]
  - MONOPLEGIA [None]
